FAERS Safety Report 8816940 (Version 1)
Quarter: 2012Q4

REPORT INFORMATION
  Report Type: Spontaneous
  Country: US (occurrence: None)
  Receive Date: 20121003
  Receipt Date: 20121003
  Transmission Date: 20130627
  Serious: Yes (Hospitalization)
  Sender: FDA-Public Use
  Company Number: None

PATIENT
  Age: 6 Year
  Sex: Female

DRUGS (1)
  1. FLEBOGAMMA [Suspect]
     Indication: LYMPHOCYTOPENIA
     Route: 042
     Dates: start: 20120924, end: 20120924

REACTIONS (5)
  - Dyspnoea [None]
  - Speech disorder [None]
  - Chills [None]
  - Convulsion [None]
  - Oxygen saturation decreased [None]
